FAERS Safety Report 7548893-3 (Version None)
Quarter: 2011Q2

REPORT INFORMATION
  Report Type: 
  Country: None (occurrence: None)
  Receive Date: 20110615
  Receipt Date: 20110201
  Transmission Date: 20111010
  Serious: Yes (Other)
  Sender: FDA-Public Use
  Company Number: US-BAYER-201035569NA

PATIENT
  Age: 40 Year
  Sex: Female
  Weight: 83.9 kg

DRUGS (10)
  1. YASMIN [Suspect]
     Indication: PRODUCT USED FOR UNKNOWN INDICATION
     Route: 048
     Dates: start: 20040401
  2. PREMARIN [Concomitant]
  3. HYDROCHLOROTHIAZIDE [Concomitant]
  4. NSAID'S [Concomitant]
  5. DROSPIRENONE AND ETHINYL ESTRADIOL [Suspect]
     Indication: PRODUCT USED FOR UNKNOWN INDICATION
     Route: 048
     Dates: start: 20040401
  6. BLOOD PRESSURE MEDS [Concomitant]
     Dosage: UNK
     Dates: start: 20000101
  7. ZANAFLEX [Concomitant]
     Dosage: UNK
     Dates: start: 20000101
  8. ZONEGRAN [Concomitant]
     Dosage: UNK
     Dates: start: 20000101
  9. YAZ [Suspect]
     Indication: PRODUCT USED FOR UNKNOWN INDICATION
     Route: 048
     Dates: start: 20040401
  10. KADIAN [Concomitant]

REACTIONS (4)
  - DEEP VEIN THROMBOSIS [None]
  - MENTAL DISORDER [None]
  - PULMONARY EMBOLISM [None]
  - THROMBOSIS [None]
